FAERS Safety Report 6809660-9 (Version None)
Quarter: 2010Q2

REPORT INFORMATION
  Report Type: 
  Country: None (occurrence: None)
  Receive Date: 20100630
  Receipt Date: 20100618
  Transmission Date: 20101027
  Serious: Yes (Life-Threatening, Hospitalization, Disabling)
  Sender: FDA-Public Use
  Company Number: JP-PFIZER INC-2008152958

PATIENT
  Age: 62 Year
  Sex: Female

DRUGS (11)
  1. SUNITINIB MALATE [Suspect]
     Indication: RENAL CELL CARCINOMA
     Dosage: 50 MG, 1X/DAY
     Dates: start: 20080903, end: 20090826
  2. THYRADIN S [Concomitant]
     Dosage: UNK
     Route: 048
  3. CIMETIDINE [Concomitant]
     Dosage: UNK
     Route: 048
     Dates: start: 20070403
  4. CEFMETAZON [Concomitant]
     Route: 042
     Dates: start: 20080908, end: 20080911
  5. ADALAT CC [Concomitant]
     Dosage: UNK
     Route: 048
     Dates: start: 20090107, end: 20090120
  6. RINDERON-VG [Concomitant]
     Dosage: UNK
     Route: 062
     Dates: start: 20080913
  7. BLOPRESS [Concomitant]
     Route: 048
     Dates: start: 20080917, end: 20080918
  8. CAPTOPRIL [Concomitant]
     Route: 048
     Dates: start: 20080919, end: 20080919
  9. LASIX [Concomitant]
     Dosage: UNK
     Route: 048
  10. EURAX H [Concomitant]
     Route: 062
  11. LOXONIN [Concomitant]
     Dosage: UNK
     Route: 048

REACTIONS (6)
  - ASCITES [None]
  - HERPES ZOSTER [None]
  - HYPERTENSION [None]
  - HYPOTHYROIDISM [None]
  - PLEURAL EFFUSION [None]
  - WHITE BLOOD CELL COUNT DECREASED [None]
